FAERS Safety Report 15083962 (Version 2)
Quarter: 2018Q4

REPORT INFORMATION
  Report Type: Spontaneous
  Country: BE (occurrence: BE)
  Receive Date: 20180628
  Receipt Date: 20181128
  Transmission Date: 20190204
  Serious: Yes (Other)
  Sender: FDA-Public Use
  Company Number: BE-SA-2018SA162618

PATIENT
  Age: 11 Year

DRUGS (1)
  1. BISACODYL. [Suspect]
     Active Substance: BISACODYL
     Dosage: 1 DF, QD
     Route: 048

REACTIONS (1)
  - Haematemesis [Unknown]
